FAERS Safety Report 4807656-X (Version None)
Quarter: 2005Q4

REPORT INFORMATION
  Report Type: 
  Country: None (occurrence: None)
  Receive Date: 20051020
  Receipt Date: 20051007
  Transmission Date: 20060501
  Serious: Yes (Death, Other)
  Sender: FDA-Public Use
  Company Number: 2005140774

PATIENT
  Age: 61 Year
  Sex: Male

DRUGS (2)
  1. BEXTRA [Suspect]
     Indication: ILL-DEFINED DISORDER
     Dosage: 1 IN 1 D, ORAL
     Route: 048
     Dates: start: 20030101, end: 20030101
  2. VIOXX [Suspect]
     Indication: BACK PAIN
     Dosage: ORAL
     Route: 048
     Dates: end: 20030101

REACTIONS (3)
  - CARDIAC FAILURE CONGESTIVE [None]
  - CARDIO-RESPIRATORY ARREST [None]
  - SUDDEN CARDIAC DEATH [None]
